FAERS Safety Report 4553785-8 (Version None)
Quarter: 2005Q1

REPORT INFORMATION
  Report Type: 
  Country: None (occurrence: None)
  Receive Date: 20050112
  Receipt Date: 20050112
  Transmission Date: 20050727
  Serious: Yes (Hospitalization)
  Sender: FDA-Public Use
  Company Number: None

PATIENT
  Age: 60 Year
  Sex: Female
  Weight: 74.8435 kg

DRUGS (2)
  1. VIOXX [Suspect]
     Indication: PAIN
     Dosage: 1 TAB ONCE DAILY ORALLY
     Route: 048
     Dates: start: 20010301
  2. VIOXX [Suspect]
     Indication: PAIN
     Dosage: 1 TAB ONCE DAILY ORALLY
     Route: 048
     Dates: start: 20010501

REACTIONS (4)
  - ASTHENIA [None]
  - NAUSEA [None]
  - RASH [None]
  - UPPER RESPIRATORY TRACT INFECTION [None]
